FAERS Safety Report 14692728 (Version 1)
Quarter: 2018Q1

REPORT INFORMATION
  Report Type: Other
  Country: IN (occurrence: IN)
  Receive Date: 20180329
  Receipt Date: 20180329
  Transmission Date: 20180509
  Serious: Yes (Life-Threatening, Congenital Anomaly)
  Sender: FDA-Public Use
  Company Number: IN-ORCHID HEALTHCARE-2044741

PATIENT

DRUGS (3)
  1. FLUOXETINE [Suspect]
     Active Substance: FLUOXETINE HYDROCHLORIDE
     Route: 065
  2. OLANZAPINE. [Suspect]
     Active Substance: OLANZAPINE
     Indication: BIPOLAR DISORDER
     Route: 065
  3. SERTRALINE [Suspect]
     Active Substance: SERTRALINE HYDROCHLORIDE
     Route: 065

REACTIONS (18)
  - Micrognathia [Unknown]
  - Neonatal disorder [Unknown]
  - Talipes [Unknown]
  - Dyspnoea [Unknown]
  - Areflexia [Unknown]
  - Gross motor delay [Unknown]
  - Neck deformity [Unknown]
  - Heart rate decreased [Unknown]
  - Wrist deformity [Unknown]
  - Subgaleal haematoma [Unknown]
  - Multiple congenital abnormalities [Unknown]
  - Limb deformity [Unknown]
  - Single umbilical artery [Unknown]
  - Congenital choroid plexus cyst [Unknown]
  - Oedema [Unknown]
  - Polyhydramnios [Unknown]
  - Aplasia [Unknown]
  - Cyanosis [Unknown]
